FAERS Safety Report 24339528 (Version 3)
Quarter: 2024Q4

REPORT INFORMATION
  Report Type: Spontaneous
  Country: PL (occurrence: PL)
  Receive Date: 20240919
  Receipt Date: 20241119
  Transmission Date: 20250115
  Serious: Yes (Other)
  Sender: SANDOZ
  Company Number: PL-NOVPHSZ-PHHY2018PL088437

PATIENT
  Age: 65 Year
  Sex: Female

DRUGS (37)
  1. CANDESARTAN CILEXETIL\HYDROCHLOROTHIAZIDE [Suspect]
     Active Substance: CANDESARTAN CILEXETIL\HYDROCHLOROTHIAZIDE
     Indication: Hypertension
     Dosage: (16 MG OF CANDESARTAN + 12,5 MG OF HYDROCHLOROTHIAZIDE), QD, UNKNOWN
     Route: 065
  2. AMLODIPINE BESYLATE [Interacting]
     Active Substance: AMLODIPINE BESYLATE
     Indication: Hypertension
     Dosage: 5 MG, QD
     Route: 065
  3. AMLODIPINE BESYLATE [Interacting]
     Active Substance: AMLODIPINE BESYLATE
     Indication: Arrhythmia supraventricular
     Dosage: UNK
     Route: 065
  4. AMLODIPINE BESYLATE [Interacting]
     Active Substance: AMLODIPINE BESYLATE
     Indication: Hyperlipidaemia
     Dosage: UNK
     Route: 065
  5. ATORVASTATIN CALCIUM [Interacting]
     Active Substance: ATORVASTATIN CALCIUM
     Indication: Hypertension
     Dosage: 20 MG, QD
     Route: 065
  6. ATORVASTATIN CALCIUM [Interacting]
     Active Substance: ATORVASTATIN CALCIUM
     Indication: Arrhythmia supraventricular
     Dosage: UNK
     Route: 065
  7. ATORVASTATIN CALCIUM [Interacting]
     Active Substance: ATORVASTATIN CALCIUM
     Indication: Hyperlipidaemia
     Dosage: UNK
     Route: 065
  8. ASPIRIN [Interacting]
     Active Substance: ASPIRIN
     Indication: Hypertension
     Dosage: 75 MG, QD
     Route: 065
  9. ASPIRIN [Interacting]
     Active Substance: ASPIRIN
     Indication: Arrhythmia
     Dosage: UNK
     Route: 065
  10. ASPIRIN [Interacting]
     Active Substance: ASPIRIN
     Indication: Hyperlipidaemia
     Dosage: UNK
     Route: 065
  11. ASPIRIN [Interacting]
     Active Substance: ASPIRIN
     Indication: Hypotension
  12. AMITRIPTYLINE [Interacting]
     Active Substance: AMITRIPTYLINE
     Indication: Depression
     Dosage: 225 MG, QD
     Route: 065
  13. BUSPIRONE [Interacting]
     Active Substance: BUSPIRONE HYDROCHLORIDE
     Indication: Depression
     Dosage: 10 MG, QD
     Route: 065
  14. BUSPIRONE [Interacting]
     Active Substance: BUSPIRONE HYDROCHLORIDE
     Dosage: 50 MG, QD
     Route: 065
  15. ENALAPRIL MALEATE\HYDROCHLOROTHIAZIDE [Interacting]
     Active Substance: ENALAPRIL MALEATE\HYDROCHLOROTHIAZIDE
     Indication: Hypertension
     Dosage: 12.5 MG, 1X/DAY (HYDROCHLOROTHIAZIDE)
     Route: 065
  16. ENALAPRIL MALEATE\HYDROCHLOROTHIAZIDE [Interacting]
     Active Substance: ENALAPRIL MALEATE\HYDROCHLOROTHIAZIDE
     Indication: Hyperlipidaemia
     Dosage: 16 MG, QD
     Route: 065
  17. ENALAPRIL MALEATE\HYDROCHLOROTHIAZIDE [Interacting]
     Active Substance: ENALAPRIL MALEATE\HYDROCHLOROTHIAZIDE
     Indication: Arrhythmia supraventricular
     Dosage: 16 MG, ENALAPRIL, 12.5 MG, HYDROCHLOROTHIAZIDE 1X/DAY)
     Route: 065
  18. LAMOTRIGINE [Interacting]
     Active Substance: LAMOTRIGINE
     Indication: Depression
     Dosage: 150 MG, QD
     Route: 065
  19. LANSOPRAZOLE [Interacting]
     Active Substance: LANSOPRAZOLE
     Indication: Hypertension
     Dosage: 15 MG, QD
     Route: 065
  20. LANSOPRAZOLE [Interacting]
     Active Substance: LANSOPRAZOLE
     Indication: Arrhythmia supraventricular
     Dosage: UNK
     Route: 065
  21. LANSOPRAZOLE [Interacting]
     Active Substance: LANSOPRAZOLE
     Indication: Hyperlipidaemia
     Dosage: UNK
     Route: 065
  22. LEVOMEPROMAZINE [Interacting]
     Active Substance: LEVOMEPROMAZINE
     Indication: Depression
     Dosage: 50 MG, QD
     Route: 065
  23. LEVOMEPROMAZINE [Interacting]
     Active Substance: LEVOMEPROMAZINE
     Indication: Depression
     Dosage: 50 MG, QD AT BEDTIME
     Route: 065
  24. LEVOMEPROMAZINE [Interacting]
     Active Substance: LEVOMEPROMAZINE
     Dosage: 50 MG AT BEDTIME
     Route: 065
  25. LEVOMEPROMAZINE [Interacting]
     Active Substance: LEVOMEPROMAZINE
     Dosage: 50 MG BEDTIME
     Route: 065
  26. LEVOMEPROMAZINE [Interacting]
     Active Substance: LEVOMEPROMAZINE
     Dosage: AT BEDTIME
     Route: 065
  27. PERAZINE [Interacting]
     Active Substance: PERAZINE
     Indication: Depression
     Dosage: 75 MG, QD
     Route: 065
  28. PROPAFENONE [Interacting]
     Active Substance: PROPAFENONE
     Indication: Arrhythmia supraventricular
     Dosage: 150 MG, QD
     Route: 065
  29. PROPAFENONE [Interacting]
     Active Substance: PROPAFENONE
     Indication: Arrhythmia
     Dosage: 450 MG, QD
     Route: 065
  30. PROPAFENONE [Interacting]
     Active Substance: PROPAFENONE
     Indication: Hypertension
     Dosage: UNK
     Route: 065
  31. PROPAFENONE [Interacting]
     Active Substance: PROPAFENONE
     Indication: Hyperlipidaemia
  32. SERTRALINE HYDROCHLORIDE [Interacting]
     Active Substance: SERTRALINE HYDROCHLORIDE
     Indication: Depression
     Dosage: 100 MG, QD IN THE MORNING
     Route: 065
  33. SERTRALINE HYDROCHLORIDE [Interacting]
     Active Substance: SERTRALINE HYDROCHLORIDE
     Indication: Depression
  34. SULPIRIDE ADAMANTANECARBOXYLATE [Interacting]
     Active Substance: SULPIRIDE ADAMANTANECARBOXYLATE
     Dosage: 10 MG, QD
     Route: 065
  35. SULPIRIDE ADAMANTANECARBOXYLATE [Interacting]
     Active Substance: SULPIRIDE ADAMANTANECARBOXYLATE
     Indication: Depression
     Dosage: 150 MG, QD
     Route: 065
  36. SULPIRIDE ADAMANTANECARBOXYLATE [Interacting]
     Active Substance: SULPIRIDE ADAMANTANECARBOXYLATE
     Dosage: 50 MG, QD
     Route: 065
  37. VINPOCETINE [Interacting]
     Active Substance: VINPOCETINE
     Indication: Depression
     Dosage: 15 MG, QD
     Route: 065

REACTIONS (31)
  - Nervous system disorder [Recovered/Resolved]
  - Cognitive disorder [Recovered/Resolved]
  - Balance disorder [Recovered/Resolved]
  - Extrapyramidal disorder [Recovered/Resolved]
  - Somnolence [Recovered/Resolved]
  - Dizziness [Recovered/Resolved]
  - Drug interaction [Unknown]
  - Fall [Recovered/Resolved]
  - Tension [Unknown]
  - Emotional disorder [Recovering/Resolving]
  - Disturbance in attention [Recovering/Resolving]
  - Mental disorder [Recovering/Resolving]
  - Tension [Unknown]
  - Fall [Unknown]
  - Overweight [Unknown]
  - Bradykinesia [Recovering/Resolving]
  - Psychomotor retardation [Unknown]
  - Flat affect [Recovering/Resolving]
  - Anhedonia [Recovered/Resolved]
  - Depressed mood [Recovering/Resolving]
  - Insomnia [Recovering/Resolving]
  - Anxiety [Recovered/Resolved]
  - Sleep deficit [Recovered/Resolved]
  - Fatigue [Recovered/Resolved]
  - Amnesia [Recovering/Resolving]
  - Sleep disorder [Recovering/Resolving]
  - Anxiety [Unknown]
  - Depression [Recovering/Resolving]
  - Somnolence [Recovered/Resolved]
  - Drug interaction [Recovering/Resolving]
  - Drug ineffective [Unknown]
